FAERS Safety Report 24239917 (Version 1)
Quarter: 2024Q3

REPORT INFORMATION
  Report Type: Spontaneous
  Country: MA (occurrence: MA)
  Receive Date: 20240822
  Receipt Date: 20240822
  Transmission Date: 20241017
  Serious: Yes (Death, Hospitalization)
  Sender: BIOMARIN
  Company Number: MA-SA-SAC20240819000931

PATIENT

DRUGS (1)
  1. LARONIDASE [Suspect]
     Active Substance: LARONIDASE
     Indication: Mucopolysaccharidosis I
     Dosage: 100 UI/KG QW
     Route: 042
     Dates: start: 20230601, end: 20240602

REACTIONS (2)
  - Disease progression [Fatal]
  - Respiratory disorder [Fatal]
